FAERS Safety Report 21899641 (Version 1)
Quarter: 2023Q1

REPORT INFORMATION
  Report Type: Spontaneous
  Country: US (occurrence: US)
  Receive Date: 20230123
  Receipt Date: 20230123
  Transmission Date: 20230417
  Serious: No
  Sender: FDA-Public Use
  Company Number: US-NOVOPROD-1000538

PATIENT
  Sex: Male
  Weight: 67.131 kg

DRUGS (3)
  1. OZEMPIC [Suspect]
     Active Substance: SEMAGLUTIDE
     Dosage: 1.0 MG
     Route: 058
  2. OZEMPIC [Suspect]
     Active Substance: SEMAGLUTIDE
     Indication: Type 2 diabetes mellitus
     Dosage: 0.5MG
     Route: 058
     Dates: start: 2021
  3. TRULICITY [Concomitant]
     Active Substance: DULAGLUTIDE
     Indication: Type 2 diabetes mellitus
     Dosage: UNK
     Route: 058

REACTIONS (8)
  - Feeling abnormal [Unknown]
  - Pain in extremity [Unknown]
  - Feeding disorder [Unknown]
  - Defaecation urgency [Unknown]
  - Asthenia [Unknown]
  - Nausea [Unknown]
  - Weight decreased [Unknown]
  - Glycosylated haemoglobin increased [Unknown]
